FAERS Safety Report 10179454 (Version 4)
Quarter: 2014Q3

REPORT INFORMATION
  Report Type: Spontaneous
  Country: NL (occurrence: NL)
  Receive Date: 20140519
  Receipt Date: 20140902
  Transmission Date: 20150326
  Serious: Yes (Death)
  Sender: FDA-Public Use
  Company Number: NL-ACORDA-ACO_103490_2014

PATIENT

DRUGS (1)
  1. FAMPYRA [Suspect]
     Active Substance: DALFAMPRIDINE
     Indication: GAIT DISTURBANCE
     Dosage: UNK
     Route: 048
     Dates: start: 20120829, end: 20131130

REACTIONS (1)
  - Death [Fatal]

NARRATIVE: CASE EVENT DATE: 20131130
